FAERS Safety Report 5648723-0 (Version None)
Quarter: 2008Q1

REPORT INFORMATION
  Report Type: 
  Country: None (occurrence: None)
  Receive Date: 20080229
  Receipt Date: 20080214
  Transmission Date: 20080703
  Serious: Yes (Hospitalization)
  Sender: FDA-Public Use
  Company Number: S08-FRA-00701-01

PATIENT
  Age: 85 Year
  Sex: Female

DRUGS (8)
  1. CITALOPRAM HYDROBROMIDE [Suspect]
     Dosage: 10 MG QD PO
     Route: 048
     Dates: start: 20080102, end: 20080107
  2. AMLODIPINE BESYLATE [Concomitant]
     Dosage: 5 MG QD PO
     Route: 048
     Dates: start: 20080101, end: 20080107
  3. CATAPRES [Suspect]
     Dosage: 0.15 MG BID IV
     Route: 042
     Dates: start: 20080102, end: 20080107
  4. HYPERIUM (RILMENIDINE) [Concomitant]
  5. ARICEPT [Concomitant]
  6. FLECAINIDE ACETATE [Concomitant]
  7. NOCTRAN (CLORAZEPATE DIPOTASSIUM) [Concomitant]
  8. ESCITALOPRAM [Concomitant]

REACTIONS (2)
  - CYTOLYTIC HEPATITIS [None]
  - HEPATITIS CHOLESTATIC [None]
